FAERS Safety Report 10128482 (Version 1)
Quarter: 2014Q2

REPORT INFORMATION
  Report Type: Spontaneous
  Country: BE (occurrence: BE)
  Receive Date: 20140428
  Receipt Date: 20140428
  Transmission Date: 20141212
  Serious: Yes (Other)
  Sender: FDA-Public Use
  Company Number: BE-UCBSA-118626

PATIENT
  Age: 63 Year
  Sex: Female
  Weight: 80 kg

DRUGS (5)
  1. CIMZIA [Suspect]
     Indication: RHEUMATOID ARTHRITIS
     Dosage: BIWEEKLY
     Route: 058
     Dates: start: 201401, end: 201403
  2. OXYCONTIN [Concomitant]
     Route: 048
  3. SERLAIN [Concomitant]
     Route: 048
  4. MEDROL [Concomitant]
     Route: 048
  5. ARAVA [Concomitant]
     Indication: RHEUMATOID ARTHRITIS

REACTIONS (1)
  - Deep vein thrombosis [Unknown]
